FAERS Safety Report 8302628-5 (Version None)
Quarter: 2012Q2

REPORT INFORMATION
  Report Type: 
  Country: None (occurrence: None)
  Receive Date: 20120420
  Receipt Date: 20120419
  Transmission Date: 20120825
  Serious: No
  Sender: FDA-Public Use
  Company Number: US-B.I. PHARMACEUTICALS,INC./RIDGEFIELD-2011-BP-06668BP

PATIENT
  Sex: Female

DRUGS (10)
  1. TRIAMTERENE [Concomitant]
     Indication: HYPERTENSION
     Route: 048
  2. AMIODARONE HCL [Concomitant]
     Indication: ATRIAL FIBRILLATION
     Route: 048
  3. CRESTOR [Concomitant]
     Indication: BLOOD CHOLESTEROL INCREASED
     Route: 048
  4. TOVIAZ [Concomitant]
     Dosage: 8 MG
     Route: 048
  5. METOPROLOL TARTRATE [Concomitant]
     Route: 048
     Dates: end: 20110331
  6. MELOXICAM [Concomitant]
     Indication: ARTHRITIS
     Dosage: 15 MG
     Route: 048
  7. PRADAXA [Suspect]
     Indication: ATRIAL FIBRILLATION
     Dosage: 150 MG
     Route: 048
     Dates: start: 20100101
  8. SYNTHROID [Concomitant]
     Route: 048
  9. ASPIRIN [Concomitant]
     Indication: PROPHYLAXIS
     Dosage: 81 MG
     Route: 048
  10. LISINOPRIL [Concomitant]
     Indication: HYPERTENSION
     Dosage: 20 MG
     Route: 048

REACTIONS (4)
  - JOINT SWELLING [None]
  - FATIGUE [None]
  - HYPOTENSION [None]
  - ASTHENIA [None]
